FAERS Safety Report 9439878 (Version 1)
Quarter: 2013Q3

REPORT INFORMATION
  Report Type: Spontaneous
  Country: FR (occurrence: FR)
  Receive Date: 20130805
  Receipt Date: 20130805
  Transmission Date: 20140515
  Serious: Yes (Hospitalization)
  Sender: FDA-Public Use
  Company Number: FR-JNJFOC-20130715633

PATIENT
  Age: 54 Year
  Sex: Male

DRUGS (4)
  1. DUROGESIC [Suspect]
     Indication: PRODUCT USED FOR UNKNOWN INDICATION
     Route: 062
  2. PAMIDRONATE DISODIUM [Suspect]
     Indication: COMPLEX REGIONAL PAIN SYNDROME
     Route: 042
     Dates: start: 20130529, end: 20130531
  3. LYRICA [Concomitant]
     Indication: PAIN
     Route: 065
  4. TRAMADOL [Concomitant]
     Indication: PAIN
     Route: 065

REACTIONS (8)
  - Renal failure acute [Unknown]
  - Influenza like illness [Unknown]
  - Diabetic hyperosmolar coma [Recovered/Resolved]
  - Nausea [Recovered/Resolved]
  - Vomiting [Recovered/Resolved]
  - Diabetes mellitus [Unknown]
  - Diarrhoea [Unknown]
  - Dehydration [Unknown]
